FAERS Safety Report 6844232-1 (Version None)
Quarter: 2010Q3

REPORT INFORMATION
  Report Type: 
  Country: None (occurrence: None)
  Receive Date: 20100715
  Receipt Date: 20100708
  Transmission Date: 20110219
  Serious: Yes (Hospitalization)
  Sender: FDA-Public Use
  Company Number: B0665539A

PATIENT
  Sex: Female
  Weight: 57 kg

DRUGS (1)
  1. SUMATRIPTAN [Suspect]
     Indication: MIGRAINE
     Route: 048
     Dates: start: 20030301

REACTIONS (2)
  - MUSCULOSKELETAL DISORDER [None]
  - SENSORY DISTURBANCE [None]
